FAERS Safety Report 20893290 (Version 2)
Quarter: 2022Q3

REPORT INFORMATION
  Report Type: Spontaneous
  Country: US (occurrence: US)
  Receive Date: 20220531
  Receipt Date: 20220923
  Transmission Date: 20221027
  Serious: Yes (Other)
  Sender: FDA-Public Use
  Company Number: US-MLMSERVICE-20220523-3564766-1

PATIENT
  Age: 81 Year
  Sex: Male

DRUGS (5)
  1. TRAMADOL HYDROCHLORIDE [Suspect]
     Active Substance: TRAMADOL HYDROCHLORIDE
     Dosage: 37.5 MG
  2. FUROSEMIDE [Suspect]
     Active Substance: FUROSEMIDE
     Dosage: 20 MG
  3. ACETAMINOPHEN [Suspect]
     Active Substance: ACETAMINOPHEN
     Dosage: UNK
  4. DIPHENHYDRAMINE [Suspect]
     Active Substance: DIPHENHYDRAMINE
     Dosage: UNK
  5. TEMAZEPAM [Suspect]
     Active Substance: TEMAZEPAM
     Dosage: 15 MG

REACTIONS (4)
  - Cognitive disorder [Recovered/Resolved]
  - Prescription drug used without a prescription [Recovered/Resolved]
  - Expired product administered [Recovered/Resolved]
  - Sleep disorder [Recovering/Resolving]
